FAERS Safety Report 12561530 (Version 3)
Quarter: 2016Q4

REPORT INFORMATION
  Report Type: Spontaneous
  Country: US (occurrence: US)
  Receive Date: 20160715
  Receipt Date: 20161018
  Transmission Date: 20170207
  Serious: Yes (Other)
  Sender: FDA-Public Use
  Company Number: US-TAKEDA-2016MPI006365

PATIENT
  Age: 62 Year
  Sex: Female
  Weight: 124.72 kg

DRUGS (1)
  1. NINLARO [Suspect]
     Active Substance: IXAZOMIB
     Indication: PLASMA CELL MYELOMA
     Dosage: 4 MG, UNK
     Route: 048
     Dates: start: 20160218, end: 20160908

REACTIONS (4)
  - White blood cell count decreased [Unknown]
  - Pharyngitis streptococcal [Unknown]
  - Platelet count decreased [Unknown]
  - Plasma cell myeloma [Unknown]

NARRATIVE: CASE EVENT DATE: 20160908
